FAERS Safety Report 7635097-9 (Version None)
Quarter: 2011Q3

REPORT INFORMATION
  Report Type: 
  Country: None (occurrence: None)
  Receive Date: 20110726
  Receipt Date: 20100817
  Transmission Date: 20111222
  Serious: Yes (Hospitalization)
  Sender: FDA-Public Use
  Company Number: US-ENDO PHARMACEUTICALS INC.-PRED20110046

PATIENT
  Sex: Male

DRUGS (6)
  1. PREDNISONE TAB [Suspect]
     Indication: SINUSITIS
     Route: 048
     Dates: start: 20100730
  2. LANTUS [Concomitant]
     Dosage: UNKNOWN
     Route: 065
  3. METFORMIN HCL [Concomitant]
     Dosage: UNKNOWN
     Route: 065
  4. HUMALOG [Concomitant]
     Dosage: UNKNOWN
     Route: 065
  5. SIMVASTATIN [Concomitant]
     Dosage: UNKNOWN
     Route: 065
  6. GLYBURIDE [Concomitant]
     Dosage: UNKNOWN
     Route: 065

REACTIONS (2)
  - DIABETES MELLITUS [None]
  - ATRIAL FIBRILLATION [None]
